FAERS Safety Report 22821550 (Version 5)
Quarter: 2023Q4

REPORT INFORMATION
  Report Type: Spontaneous
  Country: ES (occurrence: ES)
  Receive Date: 20230814
  Receipt Date: 20231130
  Transmission Date: 20240110
  Serious: Yes (Death, Hospitalization, Other)
  Sender: FDA-Public Use
  Company Number: ES-BRISTOL-MYERS SQUIBB COMPANY-2023-095364

PATIENT
  Age: 70 Year
  Sex: Male

DRUGS (2)
  1. AZACITIDINE [Suspect]
     Active Substance: AZACITIDINE
     Indication: Myelodysplastic syndrome
     Dosage: 75 MILLIGRAM/SQ. METER, QW
     Route: 058
  2. AZACITIDINE [Suspect]
     Active Substance: AZACITIDINE
     Indication: Myelofibrosis
     Dosage: 75 MILLIGRAM/SQ. METER, Q28D (7 DAYS EVERY 4 WEEKS)
     Route: 058

REACTIONS (11)
  - Pneumonia [Fatal]
  - Septic shock [Unknown]
  - Necrotising fasciitis [Unknown]
  - Skin swelling [Recovered/Resolved]
  - Hypotension [Recovered/Resolved]
  - Administration site erythema [Recovered/Resolved]
  - Skin lesion [Recovered/Resolved]
  - Administration site pain [Recovered/Resolved]
  - Pyrexia [Recovered/Resolved]
  - Administration site induration [Recovered/Resolved]
  - Product use in unapproved indication [Unknown]
